FAERS Safety Report 5589213-3 (Version None)
Quarter: 2008Q1

REPORT INFORMATION
  Report Type: 
  Country: None (occurrence: None)
  Receive Date: 20080114
  Receipt Date: 20080104
  Transmission Date: 20080703
  Serious: Yes (Death, Hospitalization)
  Sender: FDA-Public Use
  Company Number: PHRM2008FR00506

PATIENT
  Age: 89 Year
  Sex: Male

DRUGS (7)
  1. NITRODERM [Suspect]
     Dosage: 15 MG, QD
     Route: 062
  2. ASPEGIC 325 [Suspect]
     Route: 048
  3. BURINEX [Suspect]
     Dosage: 3 MG/DAY
     Route: 048
  4. POTASSIUM CHLORIDE [Suspect]
     Dosage: 1 DF, QD
     Route: 048
  5. MOPRAL [Suspect]
     Dosage: 20 MG, QD
     Route: 048
  6. IKOREL [Suspect]
     Dosage: 20 MG, QD
     Route: 048
  7. ELISOR [Suspect]
     Dosage: 40 MG, QD
     Route: 048

REACTIONS (10)
  - AREFLEXIA [None]
  - CONFUSIONAL STATE [None]
  - DISORIENTATION [None]
  - DRAIN OF CEREBRAL SUBDURAL SPACE [None]
  - FALL [None]
  - GLASGOW COMA SCALE ABNORMAL [None]
  - MOTOR DYSFUNCTION [None]
  - MYDRIASIS [None]
  - SUBDURAL HAEMATOMA [None]
  - SUBDURAL HAEMATOMA EVACUATION [None]
